FAERS Safety Report 4790372-0 (Version None)
Quarter: 2005Q4

REPORT INFORMATION
  Report Type: 
  Country: None (occurrence: None)
  Receive Date: 20051005
  Receipt Date: 20050929
  Transmission Date: 20060501
  Serious: Yes (Life-Threatening, Hospitalization, Other)
  Sender: FDA-Public Use
  Company Number: 2005-08-0173

PATIENT
  Age: 46 Year
  Sex: Female
  Weight: 53.5244 kg

DRUGS (3)
  1. RIBAVIRIN [Suspect]
     Indication: HEPATITIS C
     Dosage: ORAL
     Route: 048
     Dates: start: 19980701, end: 19980901
  2. INTERFERON INJECTABLE [Suspect]
     Indication: HEPATITIS C
     Dates: start: 19980701, end: 19980901
  3. ACCUPRIL [Concomitant]

REACTIONS (9)
  - ANOREXIA [None]
  - COMA [None]
  - DIABETES MELLITUS [None]
  - FATIGUE [None]
  - GENERAL PHYSICAL HEALTH DETERIORATION [None]
  - HYPOTRICHOSIS [None]
  - INSOMNIA [None]
  - LOSS OF CONSCIOUSNESS [None]
  - WEIGHT DECREASED [None]
